FAERS Safety Report 25503521 (Version 1)
Quarter: 2025Q3

REPORT INFORMATION
  Report Type: Spontaneous
  Country: ZA (occurrence: ZA)
  Receive Date: 20250702
  Receipt Date: 20250702
  Transmission Date: 20251021
  Serious: Yes (Death, Hospitalization, Other)
  Sender: Steriscience PTE
  Company Number: ZA-STERISCIENCE B.V.-2025-ST-001276

PATIENT
  Age: 25 Year
  Sex: Male

DRUGS (6)
  1. VANCOMYCIN [Suspect]
     Active Substance: VANCOMYCIN
     Indication: Corynebacterium infection
     Route: 065
  2. GENTAMICIN [Suspect]
     Active Substance: GENTAMICIN
     Indication: Corynebacterium infection
     Route: 065
  3. GENTAMICIN [Suspect]
     Active Substance: GENTAMICIN
     Route: 042
  4. PENICILLIN G [Suspect]
     Active Substance: PENICILLIN G
     Indication: Corynebacterium infection
     Route: 042
  5. PENICILLIN G [Suspect]
     Active Substance: PENICILLIN G
     Dosage: 6 MILLION UNITS
     Route: 042
  6. DOXYCYCLINE [Concomitant]
     Active Substance: DOXYCYCLINE
     Indication: Pyrexia
     Route: 065

REACTIONS (1)
  - Drug ineffective [Fatal]
